FAERS Safety Report 10518548 (Version 2)
Quarter: 2014Q4

REPORT INFORMATION
  Report Type: Report from Study
  Country: AU (occurrence: AU)
  Receive Date: 20141015
  Receipt Date: 20141015
  Transmission Date: 20150528
  Serious: Yes (Other)
  Sender: FDA-Public Use
  Company Number: AU-LEO PHARMA-220844

PATIENT
  Age: 67 Year
  Sex: Male
  Weight: 80 kg

DRUGS (4)
  1. PICATO [Suspect]
     Active Substance: INGENOL MEBUTATE
     Indication: ACTINIC KERATOSIS
     Route: 061
     Dates: start: 20120716, end: 20120718
  2. BLINDED IMP [Suspect]
     Active Substance: INVESTIGATIONAL PRODUCT
     Indication: ACTINIC KERATOSIS
     Dates: start: 20120911, end: 20120913
  3. PICATO [Suspect]
     Active Substance: INGENOL MEBUTATE
     Dates: start: 20120911, end: 20120913
  4. VEHICLE [Suspect]
     Active Substance: INVESTIGATIONAL PRODUCT
     Indication: ACTINIC KERATOSIS
     Route: 061
     Dates: start: 20120911, end: 20120913

REACTIONS (1)
  - Squamous cell carcinoma [Recovering/Resolving]

NARRATIVE: CASE EVENT DATE: 20130318
